FAERS Safety Report 24937607 (Version 1)
Quarter: 2025Q1

REPORT INFORMATION
  Report Type: Spontaneous
  Country: CA (occurrence: CA)
  Receive Date: 20250206
  Receipt Date: 20250206
  Transmission Date: 20250408
  Serious: Yes (Death, Other)
  Sender: B BRAUN
  Company Number: CA-B.Braun Medical Inc.-2170615

PATIENT
  Age: 60 Year
  Sex: Male

DRUGS (7)
  1. HEPARIN SODIUM IN DEXTROSE [Suspect]
     Active Substance: HEPARIN SODIUM
     Indication: Jugular vein thrombosis
  2. ALFACALCIDOL [Concomitant]
     Active Substance: ALFACALCIDOL
  3. PAMIDRONATE DISODIUM [Concomitant]
     Active Substance: PAMIDRONATE DISODIUM
  4. DENOSUMAB [Concomitant]
     Active Substance: DENOSUMAB
  5. CINACALCET [Concomitant]
     Active Substance: CINACALCET
  6. CALCIUM [Concomitant]
     Active Substance: CALCIUM
  7. CALCITONIN [Concomitant]
     Active Substance: CALCITONIN

REACTIONS (1)
  - Death [Fatal]
